FAERS Safety Report 4922237-5 (Version None)
Quarter: 2006Q1

REPORT INFORMATION
  Report Type: 
  Country: None (occurrence: None)
  Receive Date: 20060224
  Receipt Date: 20030605
  Transmission Date: 20060701
  Serious: Yes (Hospitalization, Other)
  Sender: FDA-Public Use
  Company Number: US-MERCK-0306USA00700

PATIENT
  Age: 66 Year
  Sex: Female
  Weight: 76 kg

DRUGS (7)
  1. VIOXX [Suspect]
     Indication: ARTHRALGIA
     Route: 048
     Dates: start: 20000901, end: 20011018
  2. VIOXX [Suspect]
     Route: 048
     Dates: start: 20021001
  3. VIOXX [Suspect]
     Indication: OSTEOARTHRITIS
     Route: 048
     Dates: start: 20000901, end: 20011018
  4. VIOXX [Suspect]
     Route: 048
     Dates: start: 20021001
  5. ASPIRIN [Concomitant]
     Route: 065
     Dates: start: 20000101
  6. MONOPRIL [Concomitant]
     Indication: HYPERTENSION
     Route: 065
     Dates: start: 20000101
  7. HYDROCHLOROTHIAZIDE [Concomitant]
     Indication: HYPERTENSION
     Route: 065
     Dates: start: 20000101

REACTIONS (42)
  - ABDOMINAL DISTENSION [None]
  - ACUTE MYOCARDIAL INFARCTION [None]
  - ANAEMIA [None]
  - ANGINA PECTORIS [None]
  - ANXIETY [None]
  - ARTERIOSCLEROSIS CORONARY ARTERY [None]
  - ARTHRALGIA [None]
  - BARRETT'S OESOPHAGUS [None]
  - BONE DENSITY DECREASED [None]
  - BREAST CYST [None]
  - CATARACT [None]
  - CEREBROVASCULAR ACCIDENT [None]
  - CEREBROVASCULAR DISORDER [None]
  - CHEST PAIN [None]
  - COLONIC POLYP [None]
  - CONSTIPATION [None]
  - CONTUSION [None]
  - CONVULSION [None]
  - CORONARY ARTERY DISEASE [None]
  - CORONARY ARTERY RESTENOSIS [None]
  - DIVERTICULUM INTESTINAL [None]
  - DRUG ADMINISTRATION ERROR [None]
  - ELECTROCARDIOGRAM ST SEGMENT DEPRESSION [None]
  - EROSIVE OESOPHAGITIS [None]
  - FALL [None]
  - GASTROOESOPHAGEAL REFLUX DISEASE [None]
  - HAEMORRHOIDS [None]
  - HYPERLIPIDAEMIA [None]
  - HYPERTENSION [None]
  - HYPOAESTHESIA [None]
  - HYPOTHYROIDISM [None]
  - LUNG DISORDER [None]
  - LYMPHANGITIS [None]
  - MENISCUS LESION [None]
  - MYOCARDIAL INFARCTION [None]
  - MYOCARDIAL ISCHAEMIA [None]
  - OESOPHAGEAL ULCER [None]
  - OSTEOARTHRITIS [None]
  - PINGUECULA [None]
  - RASH ERYTHEMATOUS [None]
  - RENAL FAILURE [None]
  - RETINAL NAEVUS [None]
